FAERS Safety Report 10525744 (Version 1)
Quarter: 2014Q4

REPORT INFORMATION
  Report Type: Spontaneous
  Country: FR (occurrence: FR)
  Receive Date: 20141017
  Receipt Date: 20141017
  Transmission Date: 20150528
  Serious: Yes (Death, Hospitalization, Other)
  Sender: FDA-Public Use
  Company Number: PHHY2014FR133270

PATIENT
  Sex: Female

DRUGS (3)
  1. IMATINIB [Suspect]
     Active Substance: IMATINIB
     Dosage: 400 MG, PER DAY
     Route: 065
  2. IMATINIB [Suspect]
     Active Substance: IMATINIB
     Indication: METASTATIC MALIGNANT MELANOMA
     Dosage: 300 MG, PER DAY
     Route: 065
  3. DACARBAZINE. [Suspect]
     Active Substance: DACARBAZINE
     Indication: METASTATIC MALIGNANT MELANOMA
     Route: 065

REACTIONS (12)
  - Condition aggravated [Unknown]
  - Nausea [Unknown]
  - Malignant neoplasm progression [Unknown]
  - Drug ineffective [Unknown]
  - Fatigue [Unknown]
  - Death [Fatal]
  - Metastases to lung [Unknown]
  - Hemiplegia [Unknown]
  - Metastases to bone [Unknown]
  - Treatment failure [Unknown]
  - Metastases to central nervous system [Unknown]
  - Thrombocytopenia [Unknown]
